FAERS Safety Report 9114317 (Version 1)
Quarter: 2013Q1

REPORT INFORMATION
  Report Type: Spontaneous
  Country: IT (occurrence: IT)
  Receive Date: 20130208
  Receipt Date: 20130208
  Transmission Date: 20140127
  Serious: Yes (Other)
  Sender: FDA-Public Use
  Company Number: IT-TEVA-383936ISR

PATIENT
  Age: 79 Year
  Sex: Female

DRUGS (2)
  1. FUROSEMIDE [Suspect]
     Dosage: 50 MILLIGRAM DAILY;
     Route: 048
     Dates: start: 20120918, end: 20121001
  2. LISINOPRIL [Suspect]
     Dosage: 20 MILLIGRAM DAILY;
     Route: 048
     Dates: start: 20120918, end: 20121001

REACTIONS (2)
  - Asthenia [Not Recovered/Not Resolved]
  - Renal failure acute [Not Recovered/Not Resolved]
